FAERS Safety Report 25704167 (Version 1)
Quarter: 2025Q3

REPORT INFORMATION
  Report Type: Spontaneous
  Country: CN (occurrence: CN)
  Receive Date: 20250820
  Receipt Date: 20250820
  Transmission Date: 20251021
  Serious: Yes (Death, Hospitalization)
  Sender: ASTELLAS
  Company Number: CN-ASTELLAS-2025-AER-045415

PATIENT
  Age: 81 Year
  Sex: Male
  Weight: 55 kg

DRUGS (1)
  1. PADCEV [Suspect]
     Active Substance: ENFORTUMAB VEDOTIN-EJFV
     Indication: Product used for unknown indication
     Route: 042
     Dates: start: 20250311, end: 20250715

REACTIONS (4)
  - Asthenia [Fatal]
  - Nausea [Fatal]
  - Vomiting [Fatal]
  - Decreased appetite [Fatal]

NARRATIVE: CASE EVENT DATE: 20250101
